FAERS Safety Report 5774808-4 (Version None)
Quarter: 2008Q2

REPORT INFORMATION
  Report Type: 
  Country: None (occurrence: None)
  Receive Date: 20080617
  Receipt Date: 20080609
  Transmission Date: 20081010
  Serious: Yes (Other)
  Sender: FDA-Public Use
  Company Number: CA-JNJFOC-20080601998

PATIENT
  Sex: Female

DRUGS (3)
  1. TYLENOL W/ CODEINE NO. 3 [Suspect]
     Indication: CEREBROVASCULAR ACCIDENT
  2. LACTULOSE [Concomitant]
     Indication: CONSTIPATION
  3. PRUNE JUICE [Concomitant]
     Indication: CONSTIPATION

REACTIONS (3)
  - CONSTIPATION [None]
  - DIARRHOEA [None]
  - DYSENTERY [None]
